FAERS Safety Report 23550526 (Version 1)
Quarter: 2024Q1

REPORT INFORMATION
  Report Type: Other
  Country: KR (occurrence: None)
  Receive Date: 20240221
  Receipt Date: 20240221
  Transmission Date: 20240409
  Serious: Yes (Life-Threatening, Hospitalization, Other)
  Sender: FDA-Public Use
  Company Number: KR-Invatech-000328

PATIENT
  Age: 8 Year
  Sex: Female
  Weight: 34.5 kg

DRUGS (3)
  1. NAPROXEN SODIUM [Suspect]
     Active Substance: NAPROXEN\NAPROXEN SODIUM
     Indication: Pyrexia
     Dosage: 375 MG
  2. LORAZEPAM [Concomitant]
     Active Substance: LORAZEPAM
     Indication: Eye movement disorder
     Dosage: 4 MG INTRAVENOUS ONCE
     Route: 042
  3. NAPROXEN SODIUM [Suspect]
     Active Substance: NAPROXEN\NAPROXEN SODIUM
     Indication: Abdominal pain
     Dosage: 375 MG

REACTIONS (1)
  - Reye^s syndrome [Recovered/Resolved]
